FAERS Safety Report 5832365-8 (Version None)
Quarter: 2008Q3

REPORT INFORMATION
  Report Type: 
  Country: None (occurrence: None)
  Receive Date: 20080731
  Receipt Date: 20080731
  Transmission Date: 20090109
  Serious: Yes (Life-Threatening, Hospitalization, Disabling)
  Sender: FDA-Public Use
  Company Number: None

PATIENT
  Age: 53 Year
  Sex: Female
  Weight: 92.9874 kg

DRUGS (2)
  1. FONDAPARINUX 10MG GLAXOSMITHKLINE [Suspect]
     Indication: PULMONARY EMBOLISM
     Dosage: 10MG QD SQ
     Route: 058
     Dates: start: 20080419, end: 20080422
  2. WARFARIN SODIUM [Suspect]
     Dosage: VARIOUS  QD  PO
     Route: 048
     Dates: start: 20080419, end: 20080425

REACTIONS (3)
  - ABDOMINAL PAIN [None]
  - HAEMATOMA [None]
  - HAEMORRHAGE [None]
